FAERS Safety Report 8881345 (Version 2)
Quarter: 2013Q3

REPORT INFORMATION
  Report Type: Spontaneous
  Country: US (occurrence: None)
  Receive Date: 20120426
  Receipt Date: 20130724
  Transmission Date: 20140515
  Serious: No
  Sender: FDA-Public Use
  Company Number: PHEH2012US001758

PATIENT
  Age: 39 Year
  Sex: Female

DRUGS (1)
  1. GILENYA [Suspect]
     Indication: MULTIPLE SCLEROSIS
     Route: 048
     Dates: start: 201110, end: 201201

REACTIONS (3)
  - Fatigue [None]
  - Malaise [None]
  - Dysphonia [None]
